FAERS Safety Report 15775217 (Version 1)
Quarter: 2018Q4

REPORT INFORMATION
  Report Type: Spontaneous
  Country: DE (occurrence: DE)
  Receive Date: 20181231
  Receipt Date: 20181231
  Transmission Date: 20190205
  Serious: Yes (Death, Hospitalization, Other)
  Sender: FDA-Public Use
  Company Number: DE-ACCORD-098744

PATIENT
  Age: 86 Year
  Sex: Male
  Weight: 55 kg

DRUGS (7)
  1. DONEPEZIL/DONEPEZIL HYDROCHLORIDE [Suspect]
     Active Substance: DONEPEZIL HYDROCHLORIDE
     Indication: SLEEP DISORDER
     Dosage: 10 MG, QD
     Route: 048
     Dates: start: 20171127, end: 20180115
  2. AMLODIPINE [Concomitant]
     Active Substance: AMLODIPINE BESYLATE
     Indication: HYPERTENSION
     Dosage: 5 MG, QD
  3. VALSARTAN. [Concomitant]
     Active Substance: VALSARTAN
     Indication: HYPERTENSION
     Dosage: 80 MG, QD
     Route: 048
  4. METAMIZOLE SODIUM [Concomitant]
     Active Substance: METAMIZOLE SODIUM
     Indication: PAIN
     Dosage: 1 DF, PRN
  5. COLECALCIFEROL [Concomitant]
     Active Substance: CHOLECALCIFEROL
     Indication: PROPHYLAXIS
     Dosage: 1 DF, EVERY 1 WEEK
  6. PHENPROCOUMON [Concomitant]
     Active Substance: PHENPROCOUMON
     Indication: ATRIAL FIBRILLATION
     Dosage: 1 DF, PRN
  7. VALDOXAN [Suspect]
     Active Substance: AGOMELATINE
     Indication: OFF LABEL USE
     Dosage: 25 MG, QD
     Route: 048
     Dates: start: 20171127, end: 20180115

REACTIONS (6)
  - Hallucination [Fatal]
  - Aggression [Fatal]
  - Sleep disorder [Fatal]
  - Product use issue [Unknown]
  - Restlessness [Fatal]
  - Fall [Fatal]

NARRATIVE: CASE EVENT DATE: 20171127
